FAERS Safety Report 25927339 (Version 1)
Quarter: 2025Q4

REPORT INFORMATION
  Report Type: Spontaneous
  Country: US (occurrence: US)
  Receive Date: 20251015
  Receipt Date: 20251015
  Transmission Date: 20260117
  Serious: Yes (Other)
  Sender: SANOFI AVENTIS
  Company Number: US-SA-2025SA304780

PATIENT
  Sex: Female
  Weight: 62.73 kg

DRUGS (25)
  1. DUPIXENT [Suspect]
     Active Substance: DUPILUMAB
     Indication: Nasal polyps
     Dosage: 300 MG, QOW
     Route: 058
  2. BACLOFEN [Concomitant]
     Active Substance: BACLOFEN
  3. LINZESS [Concomitant]
     Active Substance: LINACLOTIDE
  4. NORTHERA [Concomitant]
     Active Substance: DROXIDOPA
  5. BUSPIRONE HCL [Concomitant]
     Active Substance: BUSPIRONE HYDROCHLORIDE
  6. SYMBICORT [Concomitant]
     Active Substance: BUDESONIDE\FORMOTEROL FUMARATE DIHYDRATE
  7. HIZENTRA [Concomitant]
     Active Substance: HUMAN IMMUNOGLOBULIN G
  8. GABAPENTIN [Concomitant]
     Active Substance: GABAPENTIN
  9. PULMICORT TURBUHALER [Concomitant]
     Active Substance: BUDESONIDE
  10. SERTRALINE HYDROCHLORIDE [Concomitant]
     Active Substance: SERTRALINE HYDROCHLORIDE
  11. COLACE [Concomitant]
     Active Substance: DOCUSATE SODIUM
  12. RYTARY [Concomitant]
     Active Substance: CARBIDOPA\LEVODOPA
  13. AUVI-Q [Concomitant]
     Active Substance: EPINEPHRINE
  14. PROAIR DIGIHALER [Concomitant]
     Active Substance: ALBUTEROL SULFATE
  15. CLONAZEPAM [Concomitant]
     Active Substance: CLONAZEPAM
  16. ALLEGRA ALLERGY [Concomitant]
     Active Substance: FEXOFENADINE HYDROCHLORIDE
  17. VITAMIN D3 [Concomitant]
     Active Substance: CHOLECALCIFEROL
  18. MELATONIN [Concomitant]
     Active Substance: MELATONIN
  19. MELATONIN [Concomitant]
     Active Substance: MELATONIN
  20. AMANTADINE [Concomitant]
     Active Substance: AMANTADINE
  21. ESTRADIOL [Concomitant]
     Active Substance: ESTRADIOL
  22. DROXIDOPA [Concomitant]
     Active Substance: DROXIDOPA
  23. XHANCE [Concomitant]
     Active Substance: FLUTICASONE PROPIONATE
  24. CELEBREX [Concomitant]
     Active Substance: CELECOXIB
  25. MODERNA COVID-19 VACCINE [Concomitant]
     Active Substance: ELASOMERAN

REACTIONS (6)
  - Parkinson^s disease [Unknown]
  - Loss of consciousness [Unknown]
  - Blood pressure decreased [Unknown]
  - Somnolence [Unknown]
  - Brain fog [Unknown]
  - Dizziness [Unknown]
